FAERS Safety Report 25089158 (Version 3)
Quarter: 2025Q3

REPORT INFORMATION
  Report Type: Spontaneous
  Country: US (occurrence: US)
  Receive Date: 20250318
  Receipt Date: 20250916
  Transmission Date: 20251021
  Serious: Yes (Hospitalization, Other)
  Sender: SANOFI AVENTIS
  Company Number: US-SA-2025SA076687

PATIENT
  Age: 37 Year
  Sex: Female

DRUGS (1)
  1. DUPIXENT [Suspect]
     Active Substance: DUPILUMAB
     Indication: Asthma
     Dosage: 300 MG, QOW
     Route: 058

REACTIONS (7)
  - Cardiac flutter [Unknown]
  - Asthma [Unknown]
  - Wheezing [Unknown]
  - Chest pain [Unknown]
  - Dyspnoea [Unknown]
  - Rebound effect [Unknown]
  - Inflammation [Unknown]
